FAERS Safety Report 24594386 (Version 1)
Quarter: 2024Q4

REPORT INFORMATION
  Report Type: Spontaneous
  Country: US (occurrence: None)
  Receive Date: 20241108
  Receipt Date: 20241108
  Transmission Date: 20250115
  Serious: Yes (Hospitalization)
  Sender: Public
  Company Number: None

PATIENT
  Sex: Female

DRUGS (4)
  1. TRACLEER [Suspect]
     Active Substance: BOSENTAN
     Dosage: 48MG BID PO
     Route: 048
     Dates: start: 202207
  2. TADALAFIL [Suspect]
     Active Substance: TADALAFIL
  3. SILDENAFIL [Suspect]
     Active Substance: SILDENAFIL
  4. UPTRAVI [Concomitant]
     Active Substance: SELEXIPAG

REACTIONS (2)
  - Dyspnoea [None]
  - Oxygen saturation decreased [None]
